FAERS Safety Report 17634140 (Version 1)
Quarter: 2020Q2

REPORT INFORMATION
  Report Type: Spontaneous
  Country: US (occurrence: US)
  Receive Date: 20200406
  Receipt Date: 20200406
  Transmission Date: 20200713
  Serious: Yes (Other)
  Sender: FDA-Public Use
  Company Number: US-PFIZER INC-2020139668

PATIENT
  Age: 70 Year
  Sex: Female
  Weight: 74.83 kg

DRUGS (8)
  1. ADVIL [IBUPROFEN] [Concomitant]
     Active Substance: IBUPROFEN
     Dosage: 100 MG, UNK
  2. LETROZOLE. [Suspect]
     Active Substance: LETROZOLE
     Dosage: UNK [LETROZOLE DOSE HAVE 6-11%]
  3. KEFLEX [Concomitant]
     Active Substance: CEPHALEXIN
     Dosage: 500 MG, UNK
  4. BACLOFEN. [Concomitant]
     Active Substance: BACLOFEN
     Dosage: 10 MG, UNK
  5. IBRANCE [Suspect]
     Active Substance: PALBOCICLIB
     Indication: BREAST CANCER METASTATIC
     Dosage: 125 MG, CYCLIC (1DAILY FOR 21 DAYS)
     Route: 048
     Dates: start: 20200219
  6. CYCLOBENZAPRINE HCL [Concomitant]
     Active Substance: CYCLOBENZAPRINE HYDROCHLORIDE
     Dosage: UNK [100 %]
  7. NAPROSYN [Concomitant]
     Active Substance: NAPROXEN
     Dosage: 50 MG, UNK
  8. VITAMIN D3 [Concomitant]
     Active Substance: CHOLECALCIFEROL
     Dosage: UNK (10 MCG/5ML LIQUID)

REACTIONS (8)
  - Cough [Unknown]
  - Condition aggravated [Unknown]
  - Bone pain [Unknown]
  - Myopathy [Unknown]
  - Neuropathy peripheral [Unknown]
  - Arthritis [Unknown]
  - Muscle spasms [Unknown]
  - Pain [Unknown]
